FAERS Safety Report 6826358-1 (Version None)
Quarter: 2010Q3

REPORT INFORMATION
  Report Type: 
  Country: None (occurrence: None)
  Receive Date: 20100709
  Receipt Date: 20100701
  Transmission Date: 20110219
  Serious: Yes (Hospitalization)
  Sender: FDA-Public Use
  Company Number: JP-ASTRAZENECA-2010SE25439

PATIENT
  Age: 19459 Day
  Sex: Female
  Weight: 49 kg

DRUGS (5)
  1. IRESSA [Suspect]
     Indication: LUNG ADENOCARCINOMA
     Route: 048
     Dates: start: 20090801, end: 20091112
  2. IRESSA [Suspect]
     Route: 048
     Dates: start: 20100107, end: 20100204
  3. IRESSA [Suspect]
     Route: 048
     Dates: start: 20100401, end: 20100513
  4. FLOMOX [Suspect]
     Indication: NASOPHARYNGITIS
     Route: 048
     Dates: start: 20100507, end: 20100510
  5. LOXONIN [Suspect]
     Indication: NASOPHARYNGITIS
     Route: 048
     Dates: start: 20100507, end: 20100510

REACTIONS (1)
  - LIVER DISORDER [None]
